FAERS Safety Report 12926641 (Version 2)
Quarter: 2017Q1

REPORT INFORMATION
  Report Type: Spontaneous
  Country: FR (occurrence: FR)
  Receive Date: 20161109
  Receipt Date: 20170118
  Transmission Date: 20170428
  Serious: Yes (Hospitalization)
  Sender: FDA-Public Use
  Company Number: FR-ALEXION PHARMACEUTICALS INC-A201608196

PATIENT
  Age: 1 Year
  Sex: Female

DRUGS (2)
  1. SOLIRIS [Suspect]
     Active Substance: ECULIZUMAB
     Indication: OFF LABEL USE
     Dosage: 300 MG, TID
     Route: 042
     Dates: start: 20161025, end: 20161025
  2. SOLIRIS [Suspect]
     Active Substance: ECULIZUMAB
     Indication: HAEMOLYTIC URAEMIC SYNDROME
     Dosage: 300 MG, UNK
     Route: 042
     Dates: start: 20161020

REACTIONS (3)
  - Off label use [Unknown]
  - Cardiac disorder [Not Recovered/Not Resolved]
  - Nervous system disorder [Unknown]

NARRATIVE: CASE EVENT DATE: 20161025
